FAERS Safety Report 7939130-6 (Version None)
Quarter: 2011Q4

REPORT INFORMATION
  Report Type: 
  Country: None (occurrence: None)
  Receive Date: 20111124
  Receipt Date: 20111116
  Transmission Date: 20120403
  Serious: Yes (Death, Other)
  Sender: FDA-Public Use
  Company Number: JP-ROCHE-1014898

PATIENT
  Age: 76 Year
  Sex: Male

DRUGS (4)
  1. HERCEPTIN [Suspect]
     Indication: GASTRIC CANCER RECURRENT
     Dosage: DOSAGE IS UNCERTAIN.
     Route: 041
  2. CISPLATIN [Suspect]
     Indication: GASTRIC CANCER RECURRENT
     Dosage: DOSAGE IS UNCERTAIN.
     Route: 041
  3. XELODA [Suspect]
     Dosage: DOSAGE IS UNCERTAIN.
     Route: 048
  4. XELODA [Suspect]
     Indication: GASTRIC CANCER RECURRENT
     Dosage: DOSAGE IS UNCERTAIN.
     Route: 048

REACTIONS (4)
  - DECREASED APPETITE [None]
  - DISEASE PROGRESSION [None]
  - NEUTROPHIL COUNT DECREASED [None]
  - CANCER PAIN [None]
